FAERS Safety Report 10372094 (Version 3)
Quarter: 2015Q2

REPORT INFORMATION
  Report Type: Spontaneous
  Country: US (occurrence: US)
  Receive Date: 20140808
  Receipt Date: 20150421
  Transmission Date: 20150821
  Serious: Yes (Hospitalization, Other)
  Sender: FDA-Public Use
  Company Number: US-BAYER-2014-117661

PATIENT
  Age: 35 Year
  Sex: Female

DRUGS (6)
  1. NAPRELAN [Concomitant]
     Active Substance: NAPROXEN SODIUM
  2. ROCEPHIN [Concomitant]
     Active Substance: CEFTRIAXONE SODIUM
  3. BUSPAR [Concomitant]
     Active Substance: BUSPIRONE HYDROCHLORIDE
  4. CLINDESSE [Concomitant]
     Active Substance: CLINDAMYCIN PHOSPHATE
  5. MIRENA [Suspect]
     Active Substance: LEVONORGESTREL
     Indication: CONTRACEPTION
     Dosage: 20 MCG/24HR, CONT
     Route: 015
     Dates: start: 20060925, end: 20130820
  6. PROZAC [Concomitant]
     Active Substance: FLUOXETINE HYDROCHLORIDE

REACTIONS (13)
  - Procedural pain [None]
  - Arthralgia [None]
  - Amenorrhoea [None]
  - Emotional distress [None]
  - Depression [None]
  - Device misuse [None]
  - Anxiety [None]
  - Dyspareunia [None]
  - Injury [None]
  - Abdominal pain lower [None]
  - Embedded device [None]
  - Device difficult to use [None]
  - Pelvic pain [None]

NARRATIVE: CASE EVENT DATE: 2006
